FAERS Safety Report 6462025-4 (Version None)
Quarter: 2009Q4

REPORT INFORMATION
  Report Type: 
  Country: None (occurrence: None)
  Receive Date: 20091024
  Receipt Date: 20091109
  Transmission Date: 20100525
  Serious: Yes (Hospitalization)
  Sender: FDA-Public Use
  Company Number: 2009AC000236

PATIENT
  Age: 72 Year
  Sex: Male

DRUGS (48)
  1. DIGOXIN [Suspect]
     Dosage: .25 MG; QD; PO
     Route: 048
  2. LEXAPRO [Concomitant]
  3. PLAVIX [Concomitant]
  4. ARICEPT [Concomitant]
  5. SEROQUEL [Concomitant]
  6. ALBUTEROL [Concomitant]
  7. REQUIP [Concomitant]
  8. FLOMAX [Concomitant]
  9. SPIRIVA [Concomitant]
  10. ALPRAZOLAM [Concomitant]
  11. SINGULAIR [Concomitant]
  12. XANAX [Concomitant]
  13. FLOMAX [Concomitant]
  14. COREG [Concomitant]
  15. POTASSIUM CHLORIDE [Concomitant]
  16. DILTIAZEM [Concomitant]
  17. FUROSEMIDE [Concomitant]
  18. ADVAIR DISKUS 100/50 [Concomitant]
  19. SPIRONOLACTONE [Concomitant]
  20. CELEXA [Concomitant]
  21. ALDACTONE [Concomitant]
  22. ASCORBIC ACID [Concomitant]
  23. VITAMIN B-COMPLEX WITH VIT C [Concomitant]
  24. LASIX [Concomitant]
  25. ZAROXOLYN [Concomitant]
  26. SPIRIVA [Concomitant]
  27. CALCIUM 600 + D [Concomitant]
  28. ADVAIR DISKUS 100/50 [Concomitant]
  29. ARICEPT [Concomitant]
  30. SINGULAIR [Concomitant]
  31. ALBUTEROL SULFATE AUTOHALER [Concomitant]
  32. SEROQUEL [Concomitant]
  33. ALBUTEROL [Concomitant]
  34. CARVEDILOL [Concomitant]
  35. TOPROL-XL [Concomitant]
  36. COUMADIN [Concomitant]
  37. ALPRAZOLAM [Concomitant]
  38. ARICEPT [Concomitant]
  39. CITALOPRAM HYDROBROMIDE [Concomitant]
  40. COREG [Concomitant]
  41. FLOMAX [Concomitant]
  42. LASIX [Concomitant]
  43. PLAVIX [Concomitant]
  44. POTASSIUM [Concomitant]
  45. SEROQUEL [Concomitant]
  46. SINGULAIR [Concomitant]
  47. SPIRONOLACTONE [Concomitant]
  48. ZAROXOLYN [Concomitant]

REACTIONS (43)
  - ACTIVITIES OF DAILY LIVING IMPAIRED [None]
  - ANXIETY [None]
  - ASTHENIA [None]
  - ATRIAL FIBRILLATION [None]
  - ATRIAL TACHYCARDIA [None]
  - BLOOD POTASSIUM DECREASED [None]
  - BRADYCARDIA [None]
  - CARDIAC FAILURE [None]
  - CARDIAC FAILURE CONGESTIVE [None]
  - CARDIOACTIVE DRUG LEVEL INCREASED [None]
  - CARDIOMEGALY [None]
  - CHRONIC OBSTRUCTIVE PULMONARY DISEASE [None]
  - CORONARY ARTERY DISEASE [None]
  - DECREASED APPETITE [None]
  - DIASTOLIC DYSFUNCTION [None]
  - DIZZINESS [None]
  - DRUG HYPERSENSITIVITY [None]
  - DYSPNOEA [None]
  - DYSPNOEA EXERTIONAL [None]
  - ECONOMIC PROBLEM [None]
  - FAMILY STRESS [None]
  - FATIGUE [None]
  - HYPOXIA [None]
  - INCREASED TENDENCY TO BRUISE [None]
  - INJURY [None]
  - LEFT VENTRICULAR HYPERTROPHY [None]
  - OEDEMA PERIPHERAL [None]
  - OSTEOARTHRITIS [None]
  - PAIN [None]
  - PLEURAL EFFUSION [None]
  - PRESYNCOPE [None]
  - PULMONARY OEDEMA [None]
  - RENAL FAILURE [None]
  - RENAL FAILURE CHRONIC [None]
  - RENAL MASS [None]
  - RESTLESS LEGS SYNDROME [None]
  - SLEEP APNOEA SYNDROME [None]
  - SOCIAL PROBLEM [None]
  - SUFFOCATION FEELING [None]
  - SURGERY [None]
  - THERAPEUTIC AGENT TOXICITY [None]
  - UNEVALUABLE EVENT [None]
  - WEIGHT INCREASED [None]
